FAERS Safety Report 11057984 (Version 2)
Quarter: 2015Q2

REPORT INFORMATION
  Report Type: Spontaneous
  Country: US (occurrence: None)
  Receive Date: 20150421
  Receipt Date: 20150430
  Transmission Date: 20150821
  Serious: Yes (Hospitalization)
  Sender: FDA-Public Use
  Company Number: UCM201504-000233

PATIENT
  Age: 44 Year
  Sex: Male

DRUGS (3)
  1. GINSENG [Suspect]
     Active Substance: ASIAN GINSENG
  2. LAMOTRIGINE (LAMOTRIGINE) (LAMOTRIGINE) [Suspect]
     Active Substance: LAMOTRIGINE
     Indication: GENERALISED TONIC-CLONIC SEIZURE
  3. SILDENAFIL. [Concomitant]
     Active Substance: SILDENAFIL

REACTIONS (2)
  - Drug reaction with eosinophilia and systemic symptoms [None]
  - Drug interaction [None]
